FAERS Safety Report 7332554-X (Version None)
Quarter: 2011Q1

REPORT INFORMATION
  Report Type: 
  Country: None (occurrence: None)
  Receive Date: 20110304
  Receipt Date: 20110221
  Transmission Date: 20110831
  Serious: Yes (Other)
  Sender: FDA-Public Use
  Company Number: PHHY2010US83350

PATIENT
  Sex: Female
  Weight: 73.923 kg

DRUGS (1)
  1. RECLAST [Suspect]
     Dosage: 5 MG, ONCE YEARLY
     Dates: start: 20090101

REACTIONS (2)
  - BONE PAIN [None]
  - LOWER LIMB FRACTURE [None]
